FAERS Safety Report 8205973-7 (Version None)
Quarter: 2012Q1

REPORT INFORMATION
  Report Type: 
  Country: None (occurrence: None)
  Receive Date: 20120313
  Receipt Date: 20120309
  Transmission Date: 20120608
  Serious: Yes (Death, Other)
  Sender: FDA-Public Use
  Company Number: GB-JNJFOC-20120304371

PATIENT
  Age: 51 Year
  Sex: Female

DRUGS (11)
  1. QUETIAPINE [Suspect]
     Indication: BIPOLAR DISORDER
     Route: 048
     Dates: start: 20120213
  2. CLONAZEPAM [Concomitant]
     Route: 065
  3. PROMETHAZINE [Concomitant]
     Route: 065
  4. RISPERDAL CONSTA [Suspect]
     Indication: BIPOLAR DISORDER
     Route: 030
  5. RISPERDAL CONSTA [Suspect]
     Route: 030
  6. MELATONIN [Concomitant]
     Route: 065
  7. VALPROIC ACID [Concomitant]
     Route: 065
  8. HALOPERIDOL [Suspect]
     Indication: BIPOLAR DISORDER
     Route: 065
  9. PROCYCLIDINE HYDROCHLORIDE 2MG TAB [Concomitant]
     Route: 065
  10. FUROSEMIDE [Concomitant]
     Indication: OEDEMA PERIPHERAL
     Route: 065
  11. METFORMIN HCL [Concomitant]
     Indication: DIABETES MELLITUS
     Route: 065

REACTIONS (2)
  - MOOD SWINGS [None]
  - PULMONARY EMBOLISM [None]
